FAERS Safety Report 20743425 (Version 1)
Quarter: 2022Q2

REPORT INFORMATION
  Report Type: Report from Study
  Country: US (occurrence: US)
  Receive Date: 20220425
  Receipt Date: 20220425
  Transmission Date: 20220721
  Serious: Yes (Other)
  Sender: FDA-Public Use
  Company Number: US-CELGENE-USA-20211102193

PATIENT
  Age: 60 Year
  Sex: Male
  Weight: 72.57 kg

DRUGS (4)
  1. POMALYST [Suspect]
     Active Substance: POMALIDOMIDE
     Indication: Plasma cell myeloma
     Dosage: 4 MILLIGRAM
     Route: 048
     Dates: start: 202007
  2. POMALYST [Suspect]
     Active Substance: POMALIDOMIDE
     Dosage: 3 MILLIGRAM
     Route: 048
     Dates: start: 202109
  3. POMALYST [Suspect]
     Active Substance: POMALIDOMIDE
     Dosage: 2 MILLIGRAM
     Route: 048
     Dates: start: 202111
  4. POMALYST [Suspect]
     Active Substance: POMALIDOMIDE
     Dosage: DAILY 21 DAYS
     Route: 048

REACTIONS (4)
  - Neuropathy peripheral [Unknown]
  - Furuncle [Unknown]
  - Mood altered [Unknown]
  - Back pain [Unknown]
